FAERS Safety Report 17022158 (Version 3)
Quarter: 2020Q1

REPORT INFORMATION
  Report Type: Spontaneous
  Country: JP (occurrence: JP)
  Receive Date: 20191112
  Receipt Date: 20200131
  Transmission Date: 20200409
  Serious: Yes (Other)
  Sender: FDA-Public Use
  Company Number: JP-009507513-1911JPN000197J

PATIENT
  Age: 46 Year
  Sex: Male
  Weight: 79 kg

DRUGS (5)
  1. CUBICIN [Suspect]
     Active Substance: DAPTOMYCIN
     Dosage: UNK
     Route: 041
     Dates: start: 20180315, end: 20180424
  2. MEROPEN [Concomitant]
     Active Substance: MEROPENEM
     Indication: PORTAL VEIN THROMBOSIS
     Dosage: UNK
     Route: 065
  3. CUBICIN [Suspect]
     Active Substance: DAPTOMYCIN
     Dosage: UNK
     Route: 041
     Dates: start: 20180425, end: 20180703
  4. HEPARIN [Concomitant]
     Active Substance: HEPARIN SODIUM
     Indication: PORTAL VEIN THROMBOSIS
     Dosage: UNK
     Route: 065
  5. CUBICIN [Suspect]
     Active Substance: DAPTOMYCIN
     Indication: STAPHYLOCOCCAL INFECTION
     Dosage: UNK
     Route: 041
     Dates: start: 20180309, end: 20180314

REACTIONS (8)
  - Spinal cord compression [Unknown]
  - Extradural abscess [Unknown]
  - Staphylococcus test positive [Recovered/Resolved]
  - Muscular weakness [Recovered/Resolved]
  - Osteomyelitis [Unknown]
  - Paraplegia [Recovered/Resolved]
  - Mediastinal abscess [Unknown]
  - Back pain [Recovered/Resolved]

NARRATIVE: CASE EVENT DATE: 20180312
